FAERS Safety Report 8270641-2 (Version None)
Quarter: 2012Q2

REPORT INFORMATION
  Report Type: 
  Country: None (occurrence: None)
  Receive Date: 20120406
  Receipt Date: 20120324
  Transmission Date: 20120825
  Serious: Yes (Other)
  Sender: FDA-Public Use
  Company Number: 2012AP000820

PATIENT
  Age: 70 Year
  Sex: Female

DRUGS (7)
  1. AMIODARONE HCL [Suspect]
     Indication: AORTIC VALVE REPLACEMENT
  2. TERBINAFINE HCL [Concomitant]
  3. BISOPROLOL FUMARATE [Suspect]
     Indication: PRODUCT USED FOR UNKNOWN INDICATION
  4. LOSARTAN POTASSIUM [Suspect]
     Indication: AORTIC VALVE REPLACEMENT
  5. PHENPROCOUMON (PHENPROCOUMON) [Suspect]
     Indication: AORTIC VALVE REPLACEMENT
  6. TORSEMIDE [Suspect]
     Indication: AORTIC VALVE REPLACEMENT
  7. ACETYLSALICYLIC ACID SRT [Concomitant]

REACTIONS (2)
  - CUTANEOUS LUPUS ERYTHEMATOSUS [None]
  - DISEASE RECURRENCE [None]
